FAERS Safety Report 9250694 (Version 1)
Quarter: 2013Q1

REPORT INFORMATION
  Report Type: Spontaneous
  Country: US (occurrence: None)
  Receive Date: 20130305
  Receipt Date: 20130305
  Transmission Date: 20140127
  Serious: Yes (Life-Threatening, Hospitalization, Other)
  Sender: FDA-Public Use
  Company Number: 163-21880-12063057

PATIENT
  Age: 67 Year
  Sex: Male

DRUGS (1)
  1. REVLIMID [Suspect]
     Indication: PLASMA CELL MYELOMA
     Dosage: 25 MG, 21 DAYS ON THEN 7 DAYS OFF, PO
     Route: 048
     Dates: start: 20120611, end: 20120627

REACTIONS (2)
  - Deep vein thrombosis [None]
  - Pneumonia [None]
